FAERS Safety Report 20999547 (Version 1)
Quarter: 2022Q2

REPORT INFORMATION
  Report Type: Spontaneous
  Country: US (occurrence: None)
  Receive Date: 20220622
  Receipt Date: 20220622
  Transmission Date: 20220721
  Serious: Yes (Other)
  Sender: FDA-Public Use
  Company Number: None

PATIENT
  Age: 84 Year
  Sex: Female
  Weight: 78.93 kg

DRUGS (9)
  1. CLOTRIMAZOLE TROCHE [Suspect]
     Active Substance: CLOTRIMAZOLE
     Indication: Gingival swelling
     Dosage: FREQUENCY : 4 TIMES A DAY;?
     Route: 060
     Dates: start: 20220420, end: 20220424
  2. CLOTRIMAZOLE TROCHE [Suspect]
     Active Substance: CLOTRIMAZOLE
     Indication: Gingival discomfort
  3. SYNTHROID [Concomitant]
     Active Substance: LEVOTHYROXINE SODIUM
  4. METOPROLOL TARTRATE [Concomitant]
     Active Substance: METOPROLOL TARTRATE
  5. TYLENOL [Concomitant]
     Active Substance: ACETAMINOPHEN
  6. SIMVASTATIN [Concomitant]
     Active Substance: SIMVASTATIN
  7. Arthritis apin [Concomitant]
  8. Multi Women^s Vitamins [Concomitant]
  9. Daily probiotic [Concomitant]

REACTIONS (1)
  - Tooth discolouration [None]

NARRATIVE: CASE EVENT DATE: 20220424
